FAERS Safety Report 12861114 (Version 2)
Quarter: 2017Q1

REPORT INFORMATION
  Report Type: Spontaneous
  Country: IT (occurrence: IT)
  Receive Date: 20161019
  Receipt Date: 20170125
  Transmission Date: 20170428
  Serious: Yes (Other)
  Sender: FDA-Public Use
  Company Number: PHHY2016IT141847

PATIENT
  Age: 84 Year
  Sex: Female

DRUGS (10)
  1. KEPPRA [Suspect]
     Active Substance: LEVETIRACETAM
     Indication: SEIZURE
     Dosage: 1000 MG, UNK
     Route: 065
     Dates: start: 20150123, end: 20150507
  2. PRADAXA [Suspect]
     Active Substance: DABIGATRAN ETEXILATE MESYLATE
     Indication: ATRIAL FIBRILLATION
     Dosage: 220 MG, QD (FOR 2 YEARS)
     Route: 048
  3. ONCO CARBIDE [Concomitant]
     Active Substance: HYDROXYUREA
     Indication: POLYCYTHAEMIA
     Dosage: 1 DF, UNK (FOR 2 YEARS)
     Route: 048
  4. PANTORC [Concomitant]
     Active Substance: PANTOPRAZOLE SODIUM
     Indication: GASTRIC ULCER
     Dosage: 40 MG, UNK (FOR 2 YEARS)
     Route: 048
  5. NEO-LOTAN PLUS [Concomitant]
     Active Substance: HYDROCHLOROTHIAZIDE\LOSARTAN POTASSIUM
     Indication: HYPERTENSION
     Dosage: 2 DF, UNK (FOR TWO YEARS)
     Route: 048
  6. TEGRETOL [Suspect]
     Active Substance: CARBAMAZEPINE
     Dosage: 400 MG, QD
     Route: 048
  7. BISOPROLOL [Concomitant]
     Active Substance: BISOPROLOL
     Indication: ATRIAL FIBRILLATION
     Dosage: 2.5 MG, UNK (FOR 3 YEARS)
     Route: 048
  8. KEPPRA [Suspect]
     Active Substance: LEVETIRACETAM
     Dosage: 500 MG, QD
     Route: 048
     Dates: start: 20150508, end: 20150520
  9. PRADAXA [Suspect]
     Active Substance: DABIGATRAN ETEXILATE MESYLATE
     Dosage: 110 MG, QD
     Route: 048
  10. TEGRETOL [Suspect]
     Active Substance: CARBAMAZEPINE
     Indication: EPILEPSY
     Dosage: 200 MG, QD
     Route: 048
     Dates: start: 20150509, end: 20150518

REACTIONS (8)
  - Abdominal pain lower [Recovered/Resolved]
  - Headache [Recovered/Resolved]
  - Leukocytosis [Unknown]
  - Dystonia [Unknown]
  - Confusional state [Recovered/Resolved]
  - Myalgia [Recovered/Resolved]
  - Hyponatraemia [Recovered/Resolved]
  - Retching [Recovered/Resolved]

NARRATIVE: CASE EVENT DATE: 20150520
